FAERS Safety Report 26024872 (Version 1)
Quarter: 2025Q4

REPORT INFORMATION
  Report Type: Other
  Country: TH (occurrence: TH)
  Receive Date: 20251111
  Receipt Date: 20251111
  Transmission Date: 20260117
  Serious: Yes (Death, Hospitalization, Other)
  Sender: NOVITIUM PHARMA
  Company Number: TH-NOVITIUM PHARMA-000245

PATIENT
  Age: 21 Year
  Sex: Female

DRUGS (1)
  1. LIDOCAINE [Suspect]
     Active Substance: LIDOCAINE
     Indication: Local anaesthesia

REACTIONS (4)
  - Local anaesthetic systemic toxicity [Fatal]
  - Hypotension [Fatal]
  - Mental status changes [Unknown]
  - Medication error [Unknown]
